FAERS Safety Report 25138975 (Version 3)
Quarter: 2025Q2

REPORT INFORMATION
  Report Type: Spontaneous
  Country: CA (occurrence: CA)
  Receive Date: 20250331
  Receipt Date: 20250422
  Transmission Date: 20250716
  Serious: Yes (Death, Other)
  Sender: INTERCEPT PHARMACEUTICALS
  Company Number: CA-ADVANZ PHARMA-202503002088

PATIENT
  Sex: Female

DRUGS (5)
  1. OCALIVA [Suspect]
     Active Substance: OBETICHOLIC ACID
     Indication: Primary biliary cholangitis
     Dosage: 5 MG, QD (OCALIVA)
     Route: 048
     Dates: start: 20220511
  2. OCALIVA [Suspect]
     Active Substance: OBETICHOLIC ACID
  3. OCALIVA [Suspect]
     Active Substance: OBETICHOLIC ACID
     Dates: end: 20250316
  4. URSO [Concomitant]
     Active Substance: URSODIOL
     Dates: start: 201907
  5. VITAMIN B12 [Concomitant]
     Active Substance: CYANOCOBALAMIN

REACTIONS (1)
  - Metastatic neoplasm [Fatal]
